FAERS Safety Report 7953586-4 (Version None)
Quarter: 2011Q4

REPORT INFORMATION
  Report Type: 
  Country: None (occurrence: None)
  Receive Date: 20111202
  Receipt Date: 20111129
  Transmission Date: 20120403
  Serious: Yes (Death, Hospitalization, Other)
  Sender: FDA-Public Use
  Company Number: PHHY2011FR104474

PATIENT
  Age: 79 Year
  Sex: Male

DRUGS (4)
  1. FLUINDIONE [Concomitant]
  2. DOCETAXEL [Suspect]
     Indication: PROSTATE CANCER METASTATIC
     Dosage: 35 MG/M2, UNK
  3. DRONEDARONE HCL [Interacting]
     Indication: ATRIAL FIBRILLATION
     Dosage: 400 MG, BID
  4. PRAVASTATIN [Concomitant]

REACTIONS (13)
  - STOMATITIS [None]
  - KERATITIS [None]
  - FEBRILE NEUTROPENIA [None]
  - GASTROINTESTINAL INFLAMMATION [None]
  - RESPIRATORY FAILURE [None]
  - CIRCULATORY COLLAPSE [None]
  - CONJUNCTIVITIS [None]
  - DRUG INTERACTION [None]
  - ERYTHEMA [None]
  - PYREXIA [None]
  - SEPTIC SHOCK [None]
  - DIARRHOEA [None]
  - OVERDOSE [None]
